FAERS Safety Report 20541179 (Version 1)
Quarter: 2022Q1

REPORT INFORMATION
  Report Type: Spontaneous
  Country: US (occurrence: None)
  Receive Date: 20220302
  Receipt Date: 20220302
  Transmission Date: 20220424
  Serious: Yes (Disabling, Other)
  Sender: FDA-Public Use
  Company Number: None

PATIENT
  Age: 77 Year
  Sex: Female
  Weight: 70.31 kg

DRUGS (11)
  1. CEQUA [Suspect]
     Active Substance: CYCLOSPORINE
     Indication: Dry eye
     Dosage: OTHER QUANTITY : VIAL;?FREQUENCY : TWICE A DAY;?OTHER ROUTE : EYE DROPS ;?
     Route: 050
     Dates: start: 20220201, end: 20220207
  2. GABAPENTIN [Concomitant]
     Active Substance: GABAPENTIN
  3. LEVOTHYROXINE [Concomitant]
     Active Substance: LEVOTHYROXINE
  4. ATORVASTATIN [Concomitant]
     Active Substance: ATORVASTATIN
  5. LOSARTAN [Concomitant]
     Active Substance: LOSARTAN
  6. MYRBETRIQ [Concomitant]
     Active Substance: MIRABEGRON
  7. OMEPRAZOLE [Concomitant]
     Active Substance: OMEPRAZOLE
  8. VITAMIN D3 [Concomitant]
     Active Substance: CHOLECALCIFEROL
  9. IRON [Concomitant]
     Active Substance: IRON
  10. VITAMIN B12 [Concomitant]
     Active Substance: CYANOCOBALAMIN
  11. BIOTIN [Concomitant]
     Active Substance: BIOTIN

REACTIONS (5)
  - Lacrimation increased [None]
  - Pollakiuria [None]
  - Insomnia [None]
  - Nausea [None]
  - Renal disorder [None]

NARRATIVE: CASE EVENT DATE: 20220202
